FAERS Safety Report 10491353 (Version 1)
Quarter: 2014Q4

REPORT INFORMATION
  Report Type: Spontaneous
  Country: US (occurrence: US)
  Receive Date: 20141002
  Receipt Date: 20141002
  Transmission Date: 20150528
  Serious: No
  Sender: FDA-Public Use
  Company Number: US-GLAXOSMITHKLINE-A1051649A

PATIENT
  Sex: Female

DRUGS (3)
  1. XARELTO [Concomitant]
     Active Substance: RIVAROXABAN
  2. ADVAIR HFA [Suspect]
     Active Substance: FLUTICASONE PROPIONATE\SALMETEROL XINAFOATE
     Indication: CHRONIC OBSTRUCTIVE PULMONARY DISEASE
     Dosage: 1PUFF TWICE PER DAY
     Route: 055
  3. TUDORZA PRESSAIR [Concomitant]
     Active Substance: ACLIDINIUM BROMIDE

REACTIONS (2)
  - Dyspnoea [Recovering/Resolving]
  - Nasopharyngitis [Recovering/Resolving]
